FAERS Safety Report 7649985-0 (Version None)
Quarter: 2011Q3

REPORT INFORMATION
  Report Type: 
  Country: None (occurrence: None)
  Receive Date: 20110802
  Receipt Date: 20110721
  Transmission Date: 20111222
  Serious: Yes (Hospitalization)
  Sender: FDA-Public Use
  Company Number: US-JNJFOC-20110709556

PATIENT
  Sex: Female
  Weight: 57.61 kg

DRUGS (6)
  1. VASERETIC [Concomitant]
     Indication: HYPERTENSION
     Dosage: 10-25MG/ONCE DAILY
  2. REMICADE [Suspect]
     Route: 042
     Dates: start: 20080101
  3. XANAX [Concomitant]
     Indication: ANXIETY
     Route: 048
  4. VASERETIC [Concomitant]
     Indication: DIURETIC THERAPY
     Dosage: 10-25MG/ONCE DAILY
  5. REMICADE [Suspect]
     Indication: RHEUMATOID ARTHRITIS
     Route: 042
     Dates: end: 20110201
  6. REMICADE [Suspect]
     Route: 042
     Dates: start: 20110301

REACTIONS (10)
  - PULMONARY THROMBOSIS [None]
  - PAIN IN EXTREMITY [None]
  - RHEUMATOID ARTHRITIS [None]
  - THROMBOSIS [None]
  - WHITE BLOOD CELL COUNT DECREASED [None]
  - DECREASED APPETITE [None]
  - PLATELET DISORDER [None]
  - MUSCLE SPASMS [None]
  - FATIGUE [None]
  - VOMITING [None]
